FAERS Safety Report 9701642 (Version 1)
Quarter: 2013Q4

REPORT INFORMATION
  Report Type: Spontaneous
  Country: US (occurrence: US)
  Receive Date: 20131121
  Receipt Date: 20131121
  Transmission Date: 20140711
  Serious: No
  Sender: FDA-Public Use
  Company Number: US-JNJFOC-20131104419

PATIENT
  Sex: Male
  Weight: 95.26 kg

DRUGS (4)
  1. DURAGESIC [Suspect]
     Indication: SPINAL PAIN
     Route: 062
     Dates: start: 2010, end: 2010
  2. DURAGESIC [Suspect]
     Indication: SPINAL PAIN
     Route: 062
     Dates: start: 2010, end: 20130202
  3. DURAGESIC [Suspect]
     Indication: SPINAL PAIN
     Route: 062
     Dates: start: 201302
  4. DURAGESIC [Suspect]
     Indication: SPINAL PAIN
     Route: 062
     Dates: start: 2010, end: 2010

REACTIONS (9)
  - Tremor [Recovered/Resolved]
  - Inadequate analgesia [Unknown]
  - Nausea [Recovered/Resolved]
  - Hyperhidrosis [Recovered/Resolved]
  - Device failure [Unknown]
  - Product quality issue [Unknown]
  - Wrong technique in drug usage process [Unknown]
  - Product packaging issue [Unknown]
  - Product quality issue [Unknown]
